FAERS Safety Report 7992987-5 (Version None)
Quarter: 2011Q4

REPORT INFORMATION
  Report Type: 
  Country: None (occurrence: None)
  Receive Date: 20111219
  Receipt Date: 20110204
  Transmission Date: 20120403
  Serious: No
  Sender: FDA-Public Use
  Company Number: US-ASTRAZENECA-2011SE06451

PATIENT
  Age: 37 Year
  Sex: Female
  Weight: 58.5 kg

DRUGS (3)
  1. ALLEGRA [Concomitant]
     Indication: HYPERSENSITIVITY
  2. BCP [Concomitant]
     Indication: CONTRACEPTION
  3. CRESTOR [Suspect]
     Indication: BLOOD CHOLESTEROL INCREASED
     Route: 048
     Dates: start: 20100901

REACTIONS (1)
  - MUSCLE TWITCHING [None]
